FAERS Safety Report 8320070-8 (Version None)
Quarter: 2012Q2

REPORT INFORMATION
  Report Type: 
  Country: None (occurrence: None)
  Receive Date: 20120428
  Receipt Date: 20120424
  Transmission Date: 20120825
  Serious: Yes (Other)
  Sender: FDA-Public Use
  Company Number: US-ACCORD-013265

PATIENT
  Age: 22 Month
  Sex: Male

DRUGS (4)
  1. ETOPOSIDE [Suspect]
     Indication: RETINOBLASTOMA BILATERAL
     Dosage: 6 CYCLES
     Dates: start: 20050601
  2. VINCRISTINE [Suspect]
     Indication: RETINOBLASTOMA BILATERAL
     Dosage: 6 CYCLES
     Dates: start: 20050601
  3. CYCLOSPORINE [Suspect]
     Indication: RETINOBLASTOMA BILATERAL
     Dosage: 6 CYCLES
     Dates: start: 20050601
  4. CARBOPLATIN [Suspect]
     Indication: RETINOBLASTOMA BILATERAL
     Dosage: 6 CYCLES
     Dates: start: 20050601

REACTIONS (2)
  - TREATMENT FAILURE [None]
  - OFF LABEL USE [None]
